FAERS Safety Report 5894888-5 (Version None)
Quarter: 2008Q3

REPORT INFORMATION
  Report Type: 
  Country: None (occurrence: None)
  Receive Date: 20080924
  Receipt Date: 20080913
  Transmission Date: 20090109
  Serious: Yes (Hospitalization)
  Sender: FDA-Public Use
  Company Number: PHHY2008GB21581

PATIENT
  Sex: Male

DRUGS (2)
  1. CLOZARIL [Suspect]
     Indication: SCHIZOPHRENIA
     Dosage: 200 MG OF EVENING DOSE
     Dates: start: 20040812
  2. CLOZARIL [Suspect]
     Dosage: 400 MG
     Dates: start: 20080812

REACTIONS (5)
  - AGITATION [None]
  - CONFUSIONAL STATE [None]
  - HAEMORRHAGE INTRACRANIAL [None]
  - HEAD INJURY [None]
  - OVERDOSE [None]
